FAERS Safety Report 14008687 (Version 1)
Quarter: 2017Q3

REPORT INFORMATION
  Report Type: Spontaneous
  Country: US (occurrence: US)
  Receive Date: 20170925
  Receipt Date: 20170925
  Transmission Date: 20171128
  Serious: No
  Sender: FDA-Public Use
  Company Number: US-OREXO US, INC.-E2B_00000044

PATIENT
  Sex: Female
  Weight: 52.21 kg

DRUGS (4)
  1. EFFEXOR [Concomitant]
     Active Substance: VENLAFAXINE HYDROCHLORIDE
     Indication: DEPRESSION
     Dosage: 75 MG ONCE A DAY
  2. ZUBSOLV [Suspect]
     Active Substance: BUPRENORPHINE HYDROCHLORIDE\NALOXONE HYDROCHLORIDE
     Indication: DRUG DEPENDENCE
     Dosage: 5.7 MG/1.4 MG 1/4 TABLET
     Route: 060
  3. SUBOXONE [Suspect]
     Active Substance: BUPRENORPHINE HYDROCHLORIDE\NALOXONE HYDROCHLORIDE
     Indication: DEPENDENCE
  4. ZUBSOLV [Suspect]
     Active Substance: BUPRENORPHINE HYDROCHLORIDE\NALOXONE HYDROCHLORIDE
     Dosage: ^0.7 MG^
     Route: 060

REACTIONS (7)
  - Feeling abnormal [Recovering/Resolving]
  - Dissociative disorder [Recovering/Resolving]
  - Adverse event [Unknown]
  - Fatigue [Recovering/Resolving]
  - Confusional state [Recovering/Resolving]
  - Decreased interest [Recovering/Resolving]
  - Constipation [Recovering/Resolving]
